FAERS Safety Report 9418866 (Version 1)
Quarter: 2013Q3

REPORT INFORMATION
  Report Type: Spontaneous
  Country: US (occurrence: US)
  Receive Date: 20130725
  Receipt Date: 20130725
  Transmission Date: 20140515
  Serious: No
  Sender: FDA-Public Use
  Company Number: US-009507513-1307USA013880

PATIENT
  Sex: Male

DRUGS (1)
  1. JANUVIA [Suspect]
     Indication: TYPE 2 DIABETES MELLITUS
     Route: 048

REACTIONS (3)
  - White blood cell count decreased [Unknown]
  - Pyrexia [Unknown]
  - Rash [Unknown]
